FAERS Safety Report 8058454 (Version 2)
Quarter: 2012Q4

REPORT INFORMATION
  Report Type: 
  Country: GR (occurrence: GR)
  Receive Date: 20110728
  Receipt Date: 20121101
  Transmission Date: 20130627
  Serious: Yes (Death)
  Sender: FDA-Public Use
  Company Number: GR-PFIZER INC-2011170485

PATIENT
  Age: 68 Year
  Sex: Male

DRUGS (3)
  1. VORICONAZOLE [Suspect]
     Indication: ASPERGILLUS FLAVUS INFECTION
     Dosage: 6 mg/kg, 2x/day
  2. VORICONAZOLE [Suspect]
     Dosage: 4 mg/kg, 2x/day
  3. AMPHOTERICINE B [Suspect]
     Indication: ASPERGILLUS FLAVUS INFECTION
     Dosage: 3 mg/kg, 1x/day

REACTIONS (3)
  - Septic shock [Fatal]
  - Multi-organ failure [Fatal]
  - Drug ineffective [Fatal]
